FAERS Safety Report 7966958-9 (Version None)
Quarter: 2011Q4

REPORT INFORMATION
  Report Type: 
  Country: None (occurrence: None)
  Receive Date: 20111209
  Receipt Date: 20111130
  Transmission Date: 20120403
  Serious: Yes (Other)
  Sender: FDA-Public Use
  Company Number: US-CELGENEUS-163-21880-11101441

PATIENT
  Sex: Female
  Weight: 65.376 kg

DRUGS (8)
  1. REVLIMID [Suspect]
     Dosage: 10 MILLIGRAM
     Route: 048
     Dates: start: 20100816, end: 20111118
  2. HYZAAR [Concomitant]
     Dosage: 100/25
     Route: 065
     Dates: start: 20110525
  3. PROCRIT [Concomitant]
     Route: 065
  4. ASPIRIN [Concomitant]
     Dosage: 81 MILLIGRAM
     Route: 065
     Dates: start: 20110525
  5. METFORMIN HCL [Concomitant]
     Dosage: 500 MILLIGRAM
     Route: 065
     Dates: start: 20110525
  6. CHOLESTYRAMINE/COLESTIPOL [Concomitant]
     Route: 065
  7. MOXIFLOXACIN [Concomitant]
     Dosage: 400 MILLIGRAM
     Route: 065
     Dates: start: 20110922
  8. TIAZAC [Concomitant]
     Dosage: 240 MILLIGRAM
     Route: 065
     Dates: start: 20110525

REACTIONS (5)
  - HAEMORRHAGE INTRACRANIAL [None]
  - LIVER FUNCTION TEST ABNORMAL [None]
  - LUNG NEOPLASM [None]
  - NASOPHARYNGITIS [None]
  - PNEUMONIA [None]
